FAERS Safety Report 12701739 (Version 1)
Quarter: 2016Q3

REPORT INFORMATION
  Report Type: Spontaneous
  Country: US (occurrence: US)
  Receive Date: 20160831
  Receipt Date: 20160831
  Transmission Date: 20161109
  Serious: No
  Sender: FDA-Public Use
  Company Number: US-JAZZ-2016-US-007337

PATIENT
  Sex: Female

DRUGS (27)
  1. DHEA [Concomitant]
     Active Substance: PRASTERONE
  2. MAGNESIUM [Concomitant]
     Active Substance: MAGNESIUM
  3. NATURE-THROID [Concomitant]
     Active Substance: THYROID, PORCINE
  4. STOOL SOFTENER [Concomitant]
     Active Substance: DOCUSATE CALCIUM
  5. LEVOTHYROXINE. [Concomitant]
     Active Substance: LEVOTHYROXINE
  6. VITAMIN C [Concomitant]
     Active Substance: ASCORBIC ACID
  7. HYALURONIC ACID [Concomitant]
     Active Substance: HYALURONIC ACID
  8. POTASSIUM GLUCONATE [Concomitant]
     Active Substance: POTASSIUM GLUCONATE
  9. COCONUT OIL [Concomitant]
     Active Substance: COCONUT OIL
  10. ATENOLOL. [Concomitant]
     Active Substance: ATENOLOL
  11. PHENTERMINE. [Concomitant]
     Active Substance: PHENTERMINE
  12. AMLODIPINE BESYLATE. [Concomitant]
     Active Substance: AMLODIPINE BESYLATE
  13. PRAMIPEXOLE. [Concomitant]
     Active Substance: PRAMIPEXOLE
  14. LISINOPRIL. [Concomitant]
     Active Substance: LISINOPRIL
  15. MODAFINIL. [Concomitant]
     Active Substance: MODAFINIL
  16. XYREM [Suspect]
     Active Substance: SODIUM OXYBATE
     Indication: NARCOLEPSY
     Dosage: 2.25 G, BID
     Route: 048
     Dates: start: 200406, end: 200407
  17. TOBRAMYCIN. [Concomitant]
     Active Substance: TOBRAMYCIN
  18. GLUCOSAMINE + CHONDROITIN [Concomitant]
  19. MULTIVITAMINS [Concomitant]
     Active Substance: VITAMINS
  20. XYREM [Suspect]
     Active Substance: SODIUM OXYBATE
     Indication: CATAPLEXY
     Dosage: DOSE ADJUSTMENTS
     Route: 048
  21. VITAMIN B12 [Concomitant]
     Active Substance: CYANOCOBALAMIN
  22. MIRAPEX [Concomitant]
     Active Substance: PRAMIPEXOLE DIHYDROCHLORIDE
  23. XYREM [Suspect]
     Active Substance: SODIUM OXYBATE
     Dosage: 3.5 G, BID
     Route: 048
     Dates: start: 201509
  24. VITAMIN D3 [Concomitant]
     Active Substance: CHOLECALCIFEROL
  25. PROVIGIL [Concomitant]
     Active Substance: MODAFINIL
  26. ZINC ACETATE [Concomitant]
     Active Substance: ZINC ACETATE
  27. CALCIUM + VITAMIN D [Concomitant]
     Active Substance: CALCIUM\VITAMIN D

REACTIONS (3)
  - Bursitis [Not Recovered/Not Resolved]
  - Synovial cyst [Not Recovered/Not Resolved]
  - Faeces hard [Unknown]

NARRATIVE: CASE EVENT DATE: 2016
